FAERS Safety Report 9821040 (Version 2)
Quarter: 2014Q1

REPORT INFORMATION
  Report Type: Spontaneous
  Country: IT (occurrence: IT)
  Receive Date: 20140116
  Receipt Date: 20140330
  Transmission Date: 20141002
  Serious: Yes (Hospitalization)
  Sender: FDA-Public Use
  Company Number: IT-BRISTOL-MYERS SQUIBB COMPANY-20026001

PATIENT
  Age: 67 Year
  Sex: Male

DRUGS (7)
  1. COUMADIN TABS 5 MG [Suspect]
     Indication: ATRIAL FIBRILLATION
     Dosage: 1DF=1 UNIT.INTERRUPTED 28MAY12
     Route: 048
     Dates: start: 20110501
  2. ASCRIPTIN [Suspect]
     Indication: CORONARY ANGIOPLASTY
     Dosage: TABS.1DF=1 UNIT
     Route: 048
     Dates: start: 19980101, end: 20120528
  3. METFORMIN HCL [Concomitant]
     Indication: DIABETES MELLITUS
  4. AMIODARONE [Concomitant]
  5. ENALAPRIL [Concomitant]
  6. REPAGLINIDE [Concomitant]
     Route: 048
  7. AVODART [Concomitant]

REACTIONS (3)
  - Duodenal ulcer [Recovered/Resolved]
  - Anaemia [Recovered/Resolved]
  - Hypocoagulable state [Recovered/Resolved]
